FAERS Safety Report 7378062-1 (Version None)
Quarter: 2011Q1

REPORT INFORMATION
  Report Type: 
  Country: None (occurrence: None)
  Receive Date: 20110328
  Receipt Date: 20110317
  Transmission Date: 20110831
  Serious: Yes (Other)
  Sender: FDA-Public Use
  Company Number: IL-ASTRAZENECA-2011SE14987

PATIENT
  Age: 57 Year
  Sex: Female

DRUGS (7)
  1. SEROQUEL [Suspect]
     Route: 048
     Dates: start: 20110310, end: 20110317
  2. SEROQUEL [Suspect]
     Indication: SCHIZOAFFECTIVE DISORDER
     Route: 048
  3. SERTRALINE HYDROCHLORIDE [Concomitant]
  4. LITHIUM [Concomitant]
  5. CLONAZEPAM [Concomitant]
  6. SEROQUEL [Suspect]
     Route: 048
     Dates: start: 20110317
  7. BROTIZOLAM [Concomitant]

REACTIONS (2)
  - NEUTROPENIA [None]
  - DRUG DISPENSING ERROR [None]
